FAERS Safety Report 6084711-0 (Version None)
Quarter: 2009Q1

REPORT INFORMATION
  Report Type: 
  Country: None (occurrence: None)
  Receive Date: 20090219
  Receipt Date: 20090206
  Transmission Date: 20090719
  Serious: Yes (Other)
  Sender: FDA-Public Use
  Company Number: CN-PFIZER INC-2009160311

PATIENT

DRUGS (1)
  1. SULPERAZON [Suspect]
     Dosage: 3 G, 2X/DAY
     Route: 042

REACTIONS (1)
  - PLATELET COUNT DECREASED [None]
